FAERS Safety Report 6074309-2 (Version None)
Quarter: 2009Q1

REPORT INFORMATION
  Report Type: 
  Country: None (occurrence: None)
  Receive Date: 20090211
  Receipt Date: 20090205
  Transmission Date: 20090719
  Serious: No
  Sender: FDA-Public Use
  Company Number: US-B.I. PHARMACEUTICALS,INC./RIDGEFIELD-2009-BP-01508BP

PATIENT
  Age: 68 Year
  Sex: Male

DRUGS (2)
  1. ZANTAC 150 [Suspect]
     Indication: DYSPEPSIA
     Route: 048
  2. MAALOX MS [Suspect]
     Indication: ANTACID THERAPY
     Route: 048
     Dates: start: 20081204, end: 20081204

REACTIONS (1)
  - FAECES DISCOLOURED [None]
